FAERS Safety Report 7770270-0 (Version None)
Quarter: 2011Q3

REPORT INFORMATION
  Report Type: 
  Country: None (occurrence: None)
  Receive Date: 20110922
  Receipt Date: 20101015
  Transmission Date: 20111222
  Serious: No
  Sender: FDA-Public Use
  Company Number: US-ASTRAZENECA-2007UW13950

PATIENT
  Age: 12973 Day
  Sex: Female
  Weight: 89.8 kg

DRUGS (8)
  1. CLARITIN [Concomitant]
     Indication: UPPER-AIRWAY COUGH SYNDROME
     Dates: start: 19991109
  2. CLARITIN [Concomitant]
     Indication: SINUSITIS
     Dates: start: 19991109
  3. LUVOX [Concomitant]
     Dates: start: 19991109
  4. XENICAL [Concomitant]
     Indication: OVERWEIGHT
     Route: 048
     Dates: start: 19991109
  5. SEROQUEL [Suspect]
     Indication: DEPRESSION
     Dosage: 25-100 MG
     Route: 048
     Dates: start: 19960101
  6. FEN-PHEN REDUX [Concomitant]
     Indication: WEIGHT CONTROL
  7. SEROQUEL [Suspect]
     Indication: SLEEP DISORDER
     Dosage: 25-100 MG
     Route: 048
     Dates: start: 19960101
  8. PREVACID [Concomitant]
     Dates: start: 19991109

REACTIONS (4)
  - CARDIAC VALVE DISEASE [None]
  - NECK INJURY [None]
  - INTERVERTEBRAL DISC DISORDER [None]
  - TYPE 2 DIABETES MELLITUS [None]
